FAERS Safety Report 9547813 (Version 1)
Quarter: 2013Q2

REPORT INFORMATION
  Report Type: Spontaneous
  Country: US (occurrence: None)
  Receive Date: 20130606
  Receipt Date: 20130606
  Transmission Date: 20140414
  Serious: No
  Sender: FDA-Public Use
  Company Number: 2013PROUSA02685

PATIENT
  Age: 80 Year
  Sex: Male
  Weight: 111.4 kg

DRUGS (1)
  1. PROVENGE (SIPULEUCEL-T) SUSPENSION, 250ML [Suspect]
     Indication: PROSTATE CANCER METASTATIC
     Route: 042
     Dates: start: 20130321, end: 20130321

REACTIONS (4)
  - Tachycardia [None]
  - Hypertension [None]
  - Chills [None]
  - Pyrexia [None]
